FAERS Safety Report 7597736-0 (Version None)
Quarter: 2011Q3

REPORT INFORMATION
  Report Type: 
  Country: None (occurrence: None)
  Receive Date: 20110708
  Receipt Date: 20110705
  Transmission Date: 20111222
  Serious: Yes (Hospitalization)
  Sender: FDA-Public Use
  Company Number: DE-GLAXOSMITHKLINE-B0722416A

PATIENT
  Age: 80 Year
  Sex: Female
  Weight: 55 kg

DRUGS (4)
  1. ASPIRIN [Concomitant]
     Route: 048
     Dates: start: 20110228
  2. PREDNISOLONE [Concomitant]
     Indication: MULTIPLE MYELOMA
     Dosage: 60MG PER DAY
     Route: 048
     Dates: start: 20110224, end: 20110227
  3. ALKERAN [Suspect]
     Indication: MULTIPLE MYELOMA
     Dosage: 80MG PER DAY
     Route: 048
     Dates: start: 20110224, end: 20110227
  4. REVLIMID [Suspect]
     Indication: MULTIPLE MYELOMA
     Dosage: 10MG PER DAY
     Route: 048
     Dates: start: 20110224, end: 20110301

REACTIONS (1)
  - RENAL FAILURE ACUTE [None]
